FAERS Safety Report 8557169-7 (Version None)
Quarter: 2012Q3

REPORT INFORMATION
  Report Type: 
  Country: None (occurrence: None)
  Receive Date: 20120801
  Receipt Date: 20120727
  Transmission Date: 20120928
  Serious: Yes (Hospitalization)
  Sender: FDA-Public Use
  Company Number: FR-PFIZER INC-2012182151

PATIENT
  Age: 84 Year
  Sex: Male

DRUGS (9)
  1. ATORVASTATIN [Concomitant]
  2. LASIX [Concomitant]
  3. PERINDOPRIL ERBUMINE [Concomitant]
  4. INSPRA [Suspect]
     Dosage: 25 MG, 1X/DAY
     Route: 048
     Dates: start: 20110101, end: 20120608
  5. TEMERIT [Concomitant]
  6. AMLODIPINE BESYLATE [Concomitant]
  7. PLAVIX [Concomitant]
  8. EUPRESSYL [Suspect]
     Dosage: 60 MG, 1X/DAY
     Route: 048
     Dates: start: 20110101, end: 20120608
  9. ASPIRIN [Concomitant]

REACTIONS (9)
  - PAIN [None]
  - AORTIC VALVE CALCIFICATION [None]
  - INJURY [None]
  - TRICUSPID VALVE CALCIFICATION [None]
  - AORTIC STENOSIS [None]
  - ORTHOSTATIC HYPOTENSION [None]
  - MALAISE [None]
  - FALL [None]
  - WOUND [None]
